FAERS Safety Report 6869182 (Version 7)
Quarter: 2013Q3

REPORT INFORMATION
  Report Type: Spontaneous
  Country: US (occurrence: US)
  Receive Date: 20081230
  Receipt Date: 20130910
  Transmission Date: 20140515
  Serious: Yes (Other)
  Sender: FDA-Public Use
  Company Number: US-BIOGENIDEC-2008BI034650

PATIENT
  Age: 49 Year
  Sex: Female

DRUGS (15)
  1. AVONEX [Suspect]
     Indication: MULTIPLE SCLEROSIS
     Route: 030
     Dates: start: 19980206
  2. AVONEX [Suspect]
     Indication: MULTIPLE SCLEROSIS
     Route: 030
     Dates: start: 20000209, end: 20030819
  3. AVONEX [Suspect]
     Indication: MULTIPLE SCLEROSIS
     Route: 030
     Dates: start: 20030826
  4. AVONEX [Suspect]
     Indication: MULTIPLE SCLEROSIS
     Route: 030
     Dates: start: 20120723
  5. AVONEX [Suspect]
     Indication: MULTIPLE SCLEROSIS
     Route: 030
     Dates: start: 20130129
  6. AVONEX [Suspect]
     Indication: MULTIPLE SCLEROSIS
     Route: 030
     Dates: start: 20130323
  7. PREDNISONE [Concomitant]
  8. XANAX [Concomitant]
  9. LEVOTHYROXINE SODIUM [Concomitant]
  10. LASIX [Concomitant]
  11. VITAMIN C [Concomitant]
  12. IRON SULFATE [Concomitant]
     Indication: ANAEMIA
  13. PROZAC [Concomitant]
  14. METHOTREXATE SODIUM [Concomitant]
  15. METHYLPHENIDATE HCL ER [Concomitant]

REACTIONS (7)
  - Chronic lymphocytic leukaemia [Not Recovered/Not Resolved]
  - Leukocytosis [Unknown]
  - Rheumatoid arthritis [Not Recovered/Not Resolved]
  - Depression [Not Recovered/Not Resolved]
  - Hyperhidrosis [Recovered/Resolved]
  - Headache [Recovered/Resolved]
  - Fatigue [Recovered/Resolved]
